FAERS Safety Report 24088580 (Version 1)
Quarter: 2024Q3

REPORT INFORMATION
  Report Type: Spontaneous
  Country: IT (occurrence: IT)
  Receive Date: 20240715
  Receipt Date: 20240715
  Transmission Date: 20241017
  Serious: Yes (Other)
  Sender: TEVA
  Company Number: None

PATIENT
  Age: 74 Year
  Sex: Female
  Weight: 55 kg

DRUGS (1)
  1. IMATINIB [Suspect]
     Active Substance: IMATINIB
     Indication: Chordoma
     Dosage: IMATINIB MESYLATE
     Route: 048
     Dates: start: 20240303, end: 20240521

REACTIONS (2)
  - Pseudomonas infection [Recovering/Resolving]
  - Wound dehiscence [Recovering/Resolving]

NARRATIVE: CASE EVENT DATE: 20240521
